FAERS Safety Report 7096430-2 (Version None)
Quarter: 2010Q4

REPORT INFORMATION
  Report Type: 
  Country: None (occurrence: None)
  Receive Date: 20101111
  Receipt Date: 20090217
  Transmission Date: 20110411
  Serious: Yes (Other)
  Sender: FDA-Public Use
  Company Number: US-KINGPHARMUSA00001-K200900160

PATIENT
  Sex: Female
  Weight: 58 kg

DRUGS (6)
  1. ALTACE [Suspect]
     Indication: HYPERTENSION
     Dosage: UNK
  2. REBIF [Suspect]
     Indication: MULTIPLE SCLEROSIS
     Dosage: 44 MCG, TIW
     Route: 058
     Dates: start: 20081015, end: 20090113
  3. ASPIRIN [Concomitant]
     Dosage: UNK
  4. GRAPE SEED                         /01364603/ [Concomitant]
     Dosage: UNK
  5. VITAMIN A [Concomitant]
     Dosage: UNK
  6. ACTIVASE [Concomitant]
     Dosage: UNK

REACTIONS (1)
  - HEPATIC ENZYME INCREASED [None]
